FAERS Safety Report 7919295-2 (Version None)
Quarter: 2011Q4

REPORT INFORMATION
  Report Type: 
  Country: None (occurrence: None)
  Receive Date: 20111115
  Receipt Date: 20111115
  Transmission Date: 20120403
  Serious: Yes (Other)
  Sender: FDA-Public Use
  Company Number: None

PATIENT
  Sex: Male
  Weight: 93.441 kg

DRUGS (1)
  1. TAMSULOSIN HCL [Suspect]
     Indication: PROSTATOMEGALY
     Dosage: 0.4 MG ONE DAILY

REACTIONS (2)
  - HEADACHE [None]
  - PRURITUS [None]
